FAERS Safety Report 7459834-1 (Version None)
Quarter: 2011Q2

REPORT INFORMATION
  Report Type: 
  Country: None (occurrence: None)
  Receive Date: 20110505
  Receipt Date: 20110503
  Transmission Date: 20111010
  Serious: Yes (Hospitalization)
  Sender: FDA-Public Use
  Company Number: US-ABBOTT-11P-163-0718613-00

PATIENT
  Sex: Female
  Weight: 54.48 kg

DRUGS (1)
  1. HUMIRA [Suspect]
     Indication: CROHN'S DISEASE
     Dates: start: 20110123, end: 20110306

REACTIONS (6)
  - ABDOMINAL DISTENSION [None]
  - ABSCESS [None]
  - CHILLS [None]
  - ACNE [None]
  - CROHN'S DISEASE [None]
  - SMALL INTESTINAL PERFORATION [None]
